FAERS Safety Report 9861332 (Version 1)
Quarter: 2014Q1

REPORT INFORMATION
  Report Type: Report from Study
  Country: KZ (occurrence: KZ)
  Receive Date: 20140203
  Receipt Date: 20140203
  Transmission Date: 20141002
  Serious: Yes (Hospitalization)
  Sender: FDA-Public Use
  Company Number: KZ-ROCHE-1342640

PATIENT
  Sex: Female

DRUGS (2)
  1. PEGASYS [Suspect]
     Indication: CHRONIC HEPATITIS C
     Route: 058
  2. COPEGUS [Concomitant]
     Indication: CHRONIC HEPATITIS C
     Route: 048

REACTIONS (2)
  - Leukopenia [Unknown]
  - Weight decreased [Unknown]
